FAERS Safety Report 19896255 (Version 1)
Quarter: 2021Q3

REPORT INFORMATION
  Report Type: Spontaneous
  Country: US (occurrence: US)
  Receive Date: 20210929
  Receipt Date: 20210929
  Transmission Date: 20211014
  Serious: No
  Sender: FDA-Public Use
  Company Number: US-PFIZER INC-2021546013

PATIENT
  Age: 63 Year
  Sex: Female
  Weight: 83.91 kg

DRUGS (3)
  1. CHANTIX [Suspect]
     Active Substance: VARENICLINE TARTRATE
     Indication: SMOKING CESSATION THERAPY
     Dosage: 1 MG, 2X/DAY (1 TABLET IN THE MORNING AND AFTER DINNER)
     Route: 048
  2. OXCARBAZEPINE. [Concomitant]
     Active Substance: OXCARBAZEPINE
     Indication: BIPOLAR DISORDER
     Dosage: 300 MG, 3X/DAY
  3. DOXEPIN [Concomitant]
     Active Substance: DOXEPIN
     Indication: BIPOLAR DISORDER
     Dosage: 50 MG, DAILY (AT BEDTIME)

REACTIONS (3)
  - Weight abnormal [Unknown]
  - Drug ineffective [Unknown]
  - Body height decreased [Unknown]
